FAERS Safety Report 8874046 (Version 2)
Quarter: 2012Q4

REPORT INFORMATION
  Report Type: 
  Country: US (occurrence: US)
  Receive Date: 20121023
  Receipt Date: 20121127
  Transmission Date: 20130627
  Serious: No
  Sender: FDA-Public Use
  Company Number: US-ASTRAZENECA-2012SE78610

PATIENT
  Age: 65 Year
  Sex: Female

DRUGS (3)
  1. ATACAND [Suspect]
     Route: 048
  2. ATACAND [Suspect]
     Dosage: GENERIC
     Route: 048
  3. UNSPECIFIED [Suspect]
     Route: 065

REACTIONS (1)
  - Malaise [Unknown]
